FAERS Safety Report 14375797 (Version 1)
Quarter: 2018Q1

REPORT INFORMATION
  Report Type: Spontaneous
  Country: US (occurrence: US)
  Receive Date: 20180111
  Receipt Date: 20180111
  Transmission Date: 20180509
  Serious: Yes (Other)
  Sender: FDA-Public Use
  Company Number: None

PATIENT
  Age: 27 Year
  Sex: Female
  Weight: 68.85 kg

DRUGS (1)
  1. NUVARING [Suspect]
     Active Substance: ETHINYL ESTRADIOL\ETONOGESTREL
     Indication: CONTRACEPTION
     Dosage: QUANTITY:1 RING;OTHER FREQUENCY:ONCE EVERY 30 DAYS;?
     Route: 067
     Dates: start: 20121201, end: 20170528

REACTIONS (3)
  - Menstrual disorder [None]
  - Therapy cessation [None]
  - Amenorrhoea [None]

NARRATIVE: CASE EVENT DATE: 20170915
